FAERS Safety Report 23325361 (Version 1)
Quarter: 2023Q4

REPORT INFORMATION
  Report Type: Spontaneous
  Country: HU (occurrence: HU)
  Receive Date: 20231221
  Receipt Date: 20231221
  Transmission Date: 20240109
  Serious: Yes (Other)
  Sender: FDA-Public Use
  Company Number: HU-CELLTRION INC.-2023HU024190

PATIENT

DRUGS (1)
  1. ADALIMUMAB [Suspect]
     Active Substance: ADALIMUMAB\ISOPROPYL ALCOHOL
     Indication: Colitis
     Dosage: DOSAGE1: UNIT=NOT AVAILABLE
     Route: 058
     Dates: start: 2020

REACTIONS (2)
  - Optic neuritis [Recovered/Resolved]
  - Demyelination [Unknown]
